FAERS Safety Report 19618091 (Version 3)
Quarter: 2023Q4

REPORT INFORMATION
  Report Type: Other
  Country: US (occurrence: US)
  Receive Date: 20210728
  Receipt Date: 20231018
  Transmission Date: 20240110
  Serious: No
  Sender: FDA-Public Use
  Company Number: US-NEUROCRINE BIOSCIENCES INC.-2021NBI03921

PATIENT

DRUGS (2)
  1. INGREZZA [Suspect]
     Active Substance: VALBENAZINE
     Indication: Tardive dyskinesia
     Dosage: 40 MILLIGRAM, QD
     Route: 048
     Dates: start: 20210630, end: 20210708
  2. LITHIUM [Concomitant]
     Active Substance: LITHIUM
     Indication: Bipolar disorder

REACTIONS (2)
  - Tardive dyskinesia [Recovered/Resolved]
  - Drug ineffective [Unknown]

NARRATIVE: CASE EVENT DATE: 20210101
